FAERS Safety Report 18998078 (Version 1)
Quarter: 2021Q1

REPORT INFORMATION
  Report Type: Not Available
  Country: US (occurrence: US)
  Receive Date: 20210311
  Receipt Date: 20210311
  Transmission Date: 20210420
  Serious: Yes (Death, Hospitalization)
  Sender: FDA-Public Use
  Company Number: US-NEUROCRINE BIOSCIENCES INC.-2021NBI01041

PATIENT
  Age: 74 Year
  Sex: Female

DRUGS (1)
  1. INGREZZA [Suspect]
     Active Substance: VALBENAZINE
     Indication: PARKINSON^S DISEASE
     Route: 048
     Dates: start: 20190828, end: 20210218

REACTIONS (3)
  - Tardive dyskinesia [Fatal]
  - Creutzfeldt-Jakob disease [Fatal]
  - Off label use [Unknown]
